FAERS Safety Report 7107888-4 (Version None)
Quarter: 2010Q4

REPORT INFORMATION
  Report Type: 
  Country: None (occurrence: None)
  Receive Date: 20101117
  Receipt Date: 20101110
  Transmission Date: 20110411
  Serious: Yes (Life-Threatening, Hospitalization)
  Sender: FDA-Public Use
  Company Number: US-BAYER-201040887NA

PATIENT
  Sex: Female

DRUGS (1)
  1. YAZ [Suspect]
     Indication: ORAL CONTRACEPTION
     Route: 048

REACTIONS (9)
  - ASTHENIA [None]
  - DEEP VEIN THROMBOSIS [None]
  - DEFORMITY [None]
  - FATIGUE [None]
  - ISCHAEMIC STROKE [None]
  - LUNG DISORDER [None]
  - MYOCARDIAL INFARCTION [None]
  - PULMONARY EMBOLISM [None]
  - VASCULAR INJURY [None]
